FAERS Safety Report 5719219-2 (Version None)
Quarter: 2008Q2

REPORT INFORMATION
  Report Type: 
  Country: None (occurrence: None)
  Receive Date: 20080428
  Receipt Date: 20080421
  Transmission Date: 20081010
  Serious: Yes (Other)
  Sender: FDA-Public Use
  Company Number: SE-BAYER-200817070GPV

PATIENT
  Age: 44 Year
  Sex: Female

DRUGS (3)
  1. AVELOX [Suspect]
     Indication: TUBERCULOSIS
     Dosage: UNIT DOSE: 400 MG
     Route: 048
     Dates: start: 20080105, end: 20080106
  2. MYAMBUTOL [Concomitant]
     Indication: DRUG USE FOR UNKNOWN INDICATION
     Route: 048
  3. RIFAMPICIN [Concomitant]
     Indication: TUBERCULOSIS
     Route: 065

REACTIONS (2)
  - BRADYCARDIA [None]
  - TONGUE OEDEMA [None]
